FAERS Safety Report 17039307 (Version 3)
Quarter: 2019Q4

REPORT INFORMATION
  Report Type: Report from Study
  Country: FR (occurrence: FR)
  Receive Date: 20191115
  Receipt Date: 20191125
  Transmission Date: 20200122
  Serious: Yes (Death, Hospitalization, Disabling, Other)
  Sender: FDA-Public Use
  Company Number: FR-REGENERON PHARMACEUTICALS, INC.-2019-66559

PATIENT

DRUGS (8)
  1. CORTANCYL [Suspect]
     Active Substance: PREDNISONE
     Dosage: 10 MG, QW
     Route: 048
     Dates: start: 201908, end: 20190912
  2. CORTANCYL [Suspect]
     Active Substance: PREDNISONE
     Indication: PEMPHIGOID
     Dosage: 70 MG, QD
     Route: 048
     Dates: start: 20190813, end: 201908
  3. CORTANCYL [Suspect]
     Active Substance: PREDNISONE
     Dosage: 30 MG
     Route: 048
     Dates: start: 20190912
  4. CEMIPLIMAB [Suspect]
     Active Substance: CEMIPLIMAB
     Indication: SQUAMOUS CELL CARCINOMA
     Dosage: 3 MG/KG, QOW
     Dates: start: 20190425
  5. GAVISCON                           /01409601/ [Concomitant]
     Indication: REFLUX GASTRITIS
     Dosage: 2 DF, TID
     Route: 048
     Dates: start: 2017
  6. CORENITEC [Concomitant]
     Active Substance: ENALAPRIL\HYDROCHLOROTHIAZIDE
     Indication: HYPERTENSION
     Dosage: 20/12.5 MG
     Dates: start: 2018
  7. ALLOPURINOL. [Concomitant]
     Active Substance: ALLOPURINOL
     Indication: GOUT
     Dosage: 1 DF
     Dates: start: 20190715
  8. ZANIDIP [Concomitant]
     Active Substance: LERCANIDIPINE HYDROCHLORIDE
     Indication: HYPERTENSION
     Dosage: 20 MG, QD
     Dates: start: 2018

REACTIONS (4)
  - Pruritus [Recovered/Resolved]
  - Pneumocystis jirovecii pneumonia [Fatal]
  - Pemphigoid [Recovered/Resolved]
  - Urticaria [Unknown]

NARRATIVE: CASE EVENT DATE: 20190626
